FAERS Safety Report 4587175-9 (Version None)
Quarter: 2005Q1

REPORT INFORMATION
  Report Type: 
  Country: None (occurrence: None)
  Receive Date: 20050215
  Receipt Date: 20050204
  Transmission Date: 20050727
  Serious: Yes (Other)
  Sender: FDA-Public Use
  Company Number: 200510322BCC

PATIENT
  Age: 43 Year
  Sex: Male

DRUGS (3)
  1. ASPIRIN [Suspect]
     Dosage: 650 MG, QD, ORAL
     Route: 048
  2. HIGH BLOOD PRESSURE PILL [Concomitant]
  3. PREDNISONE [Concomitant]

REACTIONS (4)
  - CARDIAC ARREST [None]
  - CHEST PAIN [None]
  - CORONARY ARTERY OCCLUSION [None]
  - SYSTEMIC LUPUS ERYTHEMATOSUS [None]
